FAERS Safety Report 15627813 (Version 1)
Quarter: 2018Q4

REPORT INFORMATION
  Report Type: Spontaneous
  Country: DE (occurrence: DE)
  Receive Date: 20181116
  Receipt Date: 20181116
  Transmission Date: 20190205
  Serious: Yes (Other)
  Sender: FDA-Public Use
  Company Number: PHHY2018DE152300

PATIENT
  Sex: Female

DRUGS (2)
  1. KISQALI [Suspect]
     Active Substance: RIBOCICLIB
     Indication: METASTASES TO SPINE
  2. KISQALI [Suspect]
     Active Substance: RIBOCICLIB
     Indication: METASTASES TO CENTRAL NERVOUS SYSTEM
     Dosage: 200 MG, TID
     Route: 065
     Dates: start: 20180925, end: 20181103

REACTIONS (3)
  - Condition aggravated [Unknown]
  - Product use in unapproved indication [Unknown]
  - Paraparesis [Unknown]
